FAERS Safety Report 15606832 (Version 1)
Quarter: 2018Q4

REPORT INFORMATION
  Report Type: Spontaneous
  Country: US (occurrence: US)
  Receive Date: 20181111
  Receipt Date: 20181111
  Transmission Date: 20190205
  Serious: No
  Sender: FDA-Public Use
  Company Number: None

PATIENT
  Age: 34 Year
  Sex: Female
  Weight: 64 kg

DRUGS (1)
  1. ORLISTAT. [Suspect]
     Active Substance: ORLISTAT
     Indication: OBESITY
     Dosage: ?          QUANTITY:28 CAPSULE(S);?
     Route: 048

REACTIONS (5)
  - Product tampering [None]
  - Abdominal distension [None]
  - Feeling abnormal [None]
  - Drug ineffective [None]
  - Product counterfeit [None]
